FAERS Safety Report 9297028 (Version 2)
Quarter: 2013Q4

REPORT INFORMATION
  Report Type: Spontaneous
  Country: GB (occurrence: GB)
  Receive Date: 20130519
  Receipt Date: 20131029
  Transmission Date: 20140711
  Serious: Yes (Hospitalization)
  Sender: FDA-Public Use
  Company Number: GB-MYLANLABS-2013S1009976

PATIENT
  Age: 52 Year
  Sex: Female
  Weight: 69.9 kg

DRUGS (5)
  1. ONDANSETRON [Suspect]
     Indication: PROPHYLAXIS
     Dosage: 300 [MG/D ]/ PRECONCEPTIONAL 1200MG/D
     Route: 042
     Dates: start: 20130426, end: 20130426
  2. ISOFLURANE [Suspect]
     Indication: ANAESTHESIA
  3. PROPOFOL-LIPURO [Suspect]
     Indication: GENERAL ANAESTHESIA
     Route: 042
     Dates: start: 20130426, end: 20130426
  4. TRAMADOL [Concomitant]
     Indication: PRODUCT USED FOR UNKNOWN INDICATION
  5. TRAMADOL [Concomitant]
     Indication: PRODUCT USED FOR UNKNOWN INDICATION

REACTIONS (6)
  - Hyperventilation [Recovered/Resolved]
  - Mutism [Recovered/Resolved]
  - Slow response to stimuli [Recovered/Resolved]
  - Aphasia [Recovered/Resolved]
  - Tearfulness [Recovered/Resolved]
  - Anterograde amnesia [Recovered/Resolved]
